FAERS Safety Report 9128546 (Version 1)
Quarter: 2013Q1

REPORT INFORMATION
  Report Type: Spontaneous
  Country: US (occurrence: US)
  Receive Date: 20130228
  Receipt Date: 20130228
  Transmission Date: 20140127
  Serious: No
  Sender: FDA-Public Use
  Company Number: US-GLAXOSMITHKLINE-A1005613A

PATIENT
  Sex: Female

DRUGS (2)
  1. SUMATRIPTAN [Suspect]
  2. DEVICE [Suspect]

REACTIONS (3)
  - Accidental exposure to product [Unknown]
  - No adverse event [Unknown]
  - Product quality issue [Unknown]
